FAERS Safety Report 6949469 (Version 4)
Quarter: 2013Q2

REPORT INFORMATION
  Report Type: Spontaneous
  Country: US (occurrence: US)
  Receive Date: 20090324
  Receipt Date: 20130501
  Transmission Date: 20140414
  Serious: Yes (Hospitalization, Other)
  Sender: FDA-Public Use
  Company Number: US-ASTRAZENECA-2009UW06904

PATIENT
  Age: 89 Year
  Sex: Female

DRUGS (1)
  1. NEXIUM [Suspect]
     Route: 048

REACTIONS (6)
  - Blindness [Unknown]
  - Pneumonia [Unknown]
  - Pharyngeal ulceration [Unknown]
  - Dermatitis contact [Unknown]
  - Hypoacusis [Unknown]
  - Malaise [Unknown]
